FAERS Safety Report 17535471 (Version 4)
Quarter: 2020Q2

REPORT INFORMATION
  Report Type: Report from Study
  Country: None (occurrence: US)
  Receive Date: 20200312
  Receipt Date: 20200623
  Transmission Date: 20200713
  Serious: Yes (Other)
  Sender: FDA-Public Use
  Company Number: US-ABBVIE-20K-163-3309725-00

PATIENT
  Age: 22 Year
  Sex: Female

DRUGS (1)
  1. ORILISSA [Suspect]
     Active Substance: ELAGOLIX SODIUM
     Indication: PRODUCT USED FOR UNKNOWN INDICATION
     Route: 048

REACTIONS (18)
  - Pain [Not Recovered/Not Resolved]
  - Secretion discharge [Unknown]
  - Hypoaesthesia [Unknown]
  - Pancreatic failure [Unknown]
  - Vitamin D decreased [Unknown]
  - Tremor [Unknown]
  - Feeling cold [Unknown]
  - Spinal pain [Unknown]
  - Chills [Unknown]
  - Painful respiration [Unknown]
  - Abdominal pain [Not Recovered/Not Resolved]
  - Musculoskeletal chest pain [Not Recovered/Not Resolved]
  - Unevaluable event [Unknown]
  - Oligomenorrhoea [Unknown]
  - Migraine [Not Recovered/Not Resolved]
  - Blepharospasm [Unknown]
  - Unevaluable event [Unknown]
  - Nausea [Unknown]

NARRATIVE: CASE EVENT DATE: 202004
